FAERS Safety Report 17861321 (Version 1)
Quarter: 2020Q2

REPORT INFORMATION
  Report Type: Spontaneous
  Country: GB (occurrence: GB)
  Receive Date: 20200604
  Receipt Date: 20200604
  Transmission Date: 20200714
  Serious: Yes (Hospitalization)
  Sender: FDA-Public Use
  Company Number: GB-TEVA-2020-GB-1243371

PATIENT
  Age: 77 Year
  Sex: Female
  Weight: 60 kg

DRUGS (17)
  1. OMEPRAZOLE. [Concomitant]
     Active Substance: OMEPRAZOLE
     Dosage: UNIT DOSE: 1 DOSAGE FORMS
     Dates: start: 20200204
  2. DIPROBASE [Concomitant]
     Active Substance: CHLOROCRESOL
     Dosage: 2 DOSAGE FORMS
     Dates: start: 20200204
  3. NITROFURANTOIN. [Suspect]
     Active Substance: NITROFURANTOIN
     Dosage: MR, 200 MG
     Dates: start: 20200505
  4. ATORVASTATIN [Concomitant]
     Active Substance: ATORVASTATIN
     Dosage: 1 DOSAGE FORMS DAILY; TAKE AT NIGHT
     Dates: start: 20200204
  5. CLONIDINE. [Concomitant]
     Active Substance: CLONIDINE
     Dosage: 2 DOSAGE FORMS
     Dates: start: 20200204
  6. LEVOTHYROXINE. [Concomitant]
     Active Substance: LEVOTHYROXINE
     Dosage: 1 DOSAGE FORMS
     Dates: start: 20200204
  7. RAMIPRIL. [Concomitant]
     Active Substance: RAMIPRIL
     Dosage: 1 DOSAGE FORMS
     Dates: start: 20200204
  8. SOLIFENACIN [Concomitant]
     Active Substance: SOLIFENACIN
     Dosage: 1 DOSAGE FORMS
     Dates: start: 20200204
  9. CLOTRIMAZOLE. [Concomitant]
     Active Substance: CLOTRIMAZOLE
     Dosage: APPLY TO THE AFFECTED AREA(S) TWO TO THREE TIMES DAILY
     Dates: start: 20200505
  10. AQUEOUS CREAM [Concomitant]
     Dosage: USE AS DIRECTED AS A SOAP SUBSTITUTE
     Dates: start: 20190821
  11. QUININE [Concomitant]
     Active Substance: QUININE
     Dosage: 1 DOSAGE FORMS DAILY; NIGHT
     Dates: start: 20200204
  12. BISACODYL. [Concomitant]
     Active Substance: BISACODYL
     Dosage: 1-2 AT NIGHT
     Dates: start: 20180813
  13. CLOBETASONE BUTYRATE [Concomitant]
     Active Substance: CLOBETASONE BUTYRATE
     Dosage: APPLY 1-2 TIMES/DAY
     Dates: start: 20200310, end: 20200317
  14. TRIMETHOPRIM. [Concomitant]
     Active Substance: TRIMETHOPRIM
     Dosage: 1 DOSAGE FORMS DAILY; TAKE AT NIGHT
     Dates: start: 20200512
  15. PIVMECILLINAM [Concomitant]
     Active Substance: AMDINOCILLIN PIVOXIL
     Indication: URINARY TRACT INFECTION
     Dosage: FOR ACUTE, 2 DOSAGE FORMS
     Dates: start: 20200309, end: 20200312
  16. FOLIC ACID. [Concomitant]
     Active Substance: FOLIC ACID
     Dosage: 1 DOSAGE FORMS DAILY; TAKE IN THE MORNING - REVIEW 11/09/20
     Dates: start: 20200512
  17. CLINDAMYCIN. [Concomitant]
     Active Substance: CLINDAMYCIN
     Dosage: 1 DOSAGE FORMS DAILY; APPLY AT NIGHT
     Dates: start: 20200310, end: 20200317

REACTIONS (3)
  - Affective disorder [Recovered/Resolved]
  - Confusional state [Unknown]
  - Screaming [Unknown]

NARRATIVE: CASE EVENT DATE: 20200512
